FAERS Safety Report 19538004 (Version 1)
Quarter: 2021Q3

REPORT INFORMATION
  Report Type: Spontaneous
  Country: US (occurrence: US)
  Receive Date: 20210714
  Receipt Date: 20210714
  Transmission Date: 20211014
  Serious: Yes (Other)
  Sender: FDA-Public Use
  Company Number: US-STRIDES ARCOLAB LIMITED-2021SP019974

PATIENT
  Age: 64 Year
  Sex: Male

DRUGS (1)
  1. RANITIDINE. [Suspect]
     Active Substance: RANITIDINE
     Indication: STRESS
     Dosage: UNK
     Route: 048
     Dates: start: 199701, end: 201801

REACTIONS (2)
  - Prostate cancer [Recovered/Resolved]
  - Bladder cancer [Recovered/Resolved]

NARRATIVE: CASE EVENT DATE: 20160101
